FAERS Safety Report 9030584 (Version 1)
Quarter: 2013Q1

REPORT INFORMATION
  Report Type: Spontaneous
  Country: US (occurrence: US)
  Receive Date: 20130123
  Receipt Date: 20130123
  Transmission Date: 20140127
  Serious: Yes (Other)
  Sender: FDA-Public Use
  Company Number: US-ELI_LILLY_AND_COMPANY-US201301005130

PATIENT
  Sex: Male

DRUGS (3)
  1. EFFIENT [Suspect]
     Indication: TRANSIENT ISCHAEMIC ATTACK
     Dosage: 5 MG, UNK
  2. EFFIENT [Suspect]
     Dosage: UNK
  3. EFFIENT [Suspect]

REACTIONS (2)
  - Transient ischaemic attack [Unknown]
  - Off label use [Unknown]
